FAERS Safety Report 5833368-X (Version None)
Quarter: 2008Q3

REPORT INFORMATION
  Report Type: 
  Country: None (occurrence: None)
  Receive Date: 20080805
  Receipt Date: 20080724
  Transmission Date: 20090109
  Serious: Yes (Hospitalization, Other)
  Sender: FDA-Public Use
  Company Number: PHBS2008US05214

PATIENT
  Age: 22 Day
  Weight: 3.1 kg

DRUGS (9)
  1. OCTREOTIDE ACETATE [Suspect]
     Indication: HYPERINSULINAEMIA
     Dosage: 10 UG/KG/DAY
  2. OCTREOTIDE ACETATE [Suspect]
     Indication: HYPOGLYCAEMIA
     Dosage: TITRATED TO 15 UG/KG/DAY
  3. AMPICILLIN [Concomitant]
  4. GENTAMICIN [Concomitant]
  5. DIAZOXIDE [Concomitant]
     Dosage: 10 MG/KG/DAY
  6. DIAZOXIDE [Concomitant]
     Dosage: 20 MG/KG/DAY
  7. GLUCOSE [Concomitant]
     Dosage: 16 MG/KG, PER MINUTE
     Route: 042
  8. CARBOHYDRATES [Concomitant]
  9. GLUCAGON [Concomitant]
     Indication: HYPOGLYCAEMIA

REACTIONS (14)
  - ABDOMINAL DISTENSION [None]
  - FEEDING DISORDER NEONATAL [None]
  - HYPOGLYCAEMIA NEONATAL [None]
  - INTESTINAL INFARCTION [None]
  - INTESTINAL RESECTION [None]
  - JEJUNOSTOMY [None]
  - LAPAROTOMY [None]
  - METABOLIC ACIDOSIS [None]
  - NECROTISING COLITIS [None]
  - OBESITY [None]
  - PANCREATECTOMY [None]
  - PNEUMATOSIS INTESTINALIS [None]
  - PORTAL VENOUS GAS [None]
  - VOMITING [None]
